FAERS Safety Report 4417643-1 (Version None)
Quarter: 2004Q2

REPORT INFORMATION
  Report Type: 
  Country: None (occurrence: None)
  Receive Date: 20040625
  Receipt Date: 20040525
  Transmission Date: 20050107
  Serious: Yes (Hospitalization)
  Sender: FDA-Public Use
  Company Number: 206774

PATIENT
  Age: 63 Year
  Sex: Male
  Weight: 80.3 kg

DRUGS (1)
  1. AVASTIN [Suspect]
     Indication: COLORECTAL CANCER
     Dosage: 345 MG, UNK; INTRAVENOUS
     Route: 042
     Dates: start: 20040503

REACTIONS (1)
  - SYNCOPE [None]
